FAERS Safety Report 10548121 (Version 1)
Quarter: 2014Q4

REPORT INFORMATION
  Report Type: Spontaneous
  Country: US (occurrence: None)
  Receive Date: 20141027
  Receipt Date: 20141027
  Transmission Date: 20150529
  Serious: Yes (Hospitalization)
  Sender: FDA-Public Use
  Company Number: None

PATIENT
  Age: 51 Year
  Sex: Female
  Weight: 73.2 kg

DRUGS (20)
  1. SIMEPREVIR 150MG JANSSEN [Suspect]
     Active Substance: SIMEPREVIR
     Indication: HEPATITIS C
     Route: 048
     Dates: start: 20140124, end: 20140411
  2. PRILOSEC [Concomitant]
     Active Substance: OMEPRAZOLE MAGNESIUM
  3. SENNA [Concomitant]
     Active Substance: SENNA LEAF\SENNOSIDES\SENNOSIDES A AND B
  4. OXYCODONE [Concomitant]
     Active Substance: OXYCODONE
  5. SOFOSBUVIR [Suspect]
     Active Substance: SOFOSBUVIR
     Indication: HEPATITIS C
     Route: 048
     Dates: start: 20140124, end: 20140411
  6. PREDNISONE. [Concomitant]
     Active Substance: PREDNISONE
  7. PROGRAF [Concomitant]
     Active Substance: TACROLIMUS\TACROLIMUS ANHYDROUS
  8. CALCIUM CARBONATE. [Concomitant]
     Active Substance: CALCIUM CARBONATE
  9. COENZYME Q [Concomitant]
  10. BACTRIM [Concomitant]
     Active Substance: SULFAMETHOXAZOLE\TRIMETHOPRIM
  11. VALCYTE [Concomitant]
     Active Substance: VALGANCICLOVIR HYDROCHLORIDE
  12. MEGACE [Concomitant]
     Active Substance: MEGESTROL ACETATE
  13. FISH OIL [Concomitant]
     Active Substance: FISH OIL
  14. VITAMIN D [Concomitant]
     Active Substance: CHOLECALCIFEROL
  15. CELLCEPT [Concomitant]
     Active Substance: MYCOPHENOLATE MOFETIL\MYCOPHENOLATE MOFETIL HYDROCHLORIDE
  16. MIRALAX [Concomitant]
     Active Substance: POLYETHYLENE GLYCOL 3350
  17. NYSTATIN. [Concomitant]
     Active Substance: NYSTATIN
  18. COLACE [Concomitant]
     Active Substance: DOCUSATE SODIUM
  19. WARFARIN [Concomitant]
     Active Substance: WARFARIN
  20. MULTIVITAMIN [Concomitant]
     Active Substance: VITAMINS

REACTIONS (1)
  - Conjunctival haemorrhage [None]

NARRATIVE: CASE EVENT DATE: 20140124
